FAERS Safety Report 23867381 (Version 1)
Quarter: 2024Q2

REPORT INFORMATION
  Report Type: Spontaneous
  Country: US (occurrence: US)
  Receive Date: 20240517
  Receipt Date: 20240517
  Transmission Date: 20240716
  Serious: No
  Sender: FDA-Public Use
  Company Number: US-BRISTOL-MYERS SQUIBB COMPANY-2024-076749

PATIENT
  Age: 44 Year
  Sex: Female
  Weight: 66.2 kg

DRUGS (1)
  1. REVLIMID [Suspect]
     Active Substance: LENALIDOMIDE
     Indication: Non-Hodgkin^s lymphoma
     Dosage: FREQ : DAILY, 21 DAYS ON 7 DAYS OFF.
     Route: 048
     Dates: start: 20240424

REACTIONS (6)
  - Fatigue [Unknown]
  - Bone pain [Unknown]
  - Dry mouth [Unknown]
  - Dry skin [Unknown]
  - Muscle spasms [Unknown]
  - Decreased appetite [Unknown]

NARRATIVE: CASE EVENT DATE: 20240401
